FAERS Safety Report 12954877 (Version 1)
Quarter: 2016Q4

REPORT INFORMATION
  Report Type: Spontaneous
  Country: US (occurrence: US)
  Receive Date: 20161118
  Receipt Date: 20161118
  Transmission Date: 20170207
  Serious: No
  Sender: FDA-Public Use
  Company Number: None

PATIENT
  Age: 82 Year
  Sex: Male
  Weight: 77.11 kg

DRUGS (5)
  1. FINASTERIDE. [Concomitant]
     Active Substance: FINASTERIDE
  2. FINASTERIDE TABLETS 5 MG [Suspect]
     Active Substance: FINASTERIDE
     Indication: PROSTATIC DISORDER
     Dosage: ?          QUANTITY:I I R?11.1.? V?ICAM;?
     Route: 048
     Dates: start: 20080708
  3. ONE A DAY MEN^S HEALTH FORMULA [Concomitant]
     Active Substance: VITAMINS
  4. FINASTERIDE TABLETS 5 MG [Suspect]
     Active Substance: FINASTERIDE
     Indication: BENIGN PROSTATIC HYPERPLASIA
     Dosage: ?          QUANTITY:I I R?11.1.? V?ICAM;?
     Route: 048
     Dates: start: 20080708
  5. TERAZOSIN HCL [Concomitant]
     Active Substance: TERAZOSIN HYDROCHLORIDE

REACTIONS (2)
  - Erectile dysfunction [None]
  - Libido decreased [None]
